FAERS Safety Report 14322107 (Version 2)
Quarter: 2018Q1

REPORT INFORMATION
  Report Type: Spontaneous
  Country: FR (occurrence: FR)
  Receive Date: 20171225
  Receipt Date: 20180104
  Transmission Date: 20180509
  Serious: Yes (Other)
  Sender: FDA-Public Use
  Company Number: FR-JNJFOC-20171136626

PATIENT
  Age: 34 Year
  Sex: Female

DRUGS (10)
  1. SUFENTANIL CITRATE. [Suspect]
     Active Substance: SUFENTANIL CITRATE
     Indication: ANAESTHESIA
     Dosage: 20 ML OF A SOLUTION OF 1 MG/ML ROPIVACAINE AND 0.25 MCG/ML SUFENTANIL
     Route: 008
  2. ENOXAPARIN [Suspect]
     Active Substance: ENOXAPARIN
     Indication: THROMBOSIS PROPHYLAXIS
     Route: 058
  3. ROPIVACAINE [Suspect]
     Active Substance: ROPIVACAINE
     Indication: ANAESTHESIA
     Dosage: ONE SLOW AND SPLIT INJECTION OF 20ML OF A SOLUTION OF 1MG/ ML
     Route: 008
  4. KETOPROFEN. [Suspect]
     Active Substance: KETOPROFEN
     Indication: ANALGESIC THERAPY
     Route: 048
  5. LIDOCAINE. [Suspect]
     Active Substance: LIDOCAINE
     Indication: ANAESTHESIA
     Dosage: 15 ML OF LIDOCAINE 20MG/ ML WITH ADRENALIN
     Route: 065
  6. NEFOPAM [Suspect]
     Active Substance: NEFOPAM
     Indication: ANALGESIC THERAPY
     Route: 048
  7. PARACETAMOL [Suspect]
     Active Substance: ACETAMINOPHEN
     Indication: ANALGESIC THERAPY
     Route: 048
  8. MORPHINE [Suspect]
     Active Substance: MORPHINE
     Indication: ANALGESIC THERAPY
     Route: 008
  9. SUFENTANIL CITRATE. [Suspect]
     Active Substance: SUFENTANIL CITRATE
     Indication: ANAESTHESIA
     Dosage: ONE SLOW AND SPLIT INJECTION OF 20 ML OF A SOLUTION OF 0.25 MCG/ML
     Route: 008
  10. ADRENALINE [Suspect]
     Active Substance: EPINEPHRINE
     Indication: ANAESTHESIA
     Dosage: 15 ML OF LIDOCAINE 20MG/ ML WITH ADRENALIN
     Route: 065

REACTIONS (5)
  - Peripheral nerve injury [Recovered/Resolved]
  - Paraesthesia [Recovered/Resolved]
  - Maternal exposure during pregnancy [Unknown]
  - Spinal epidural haemorrhage [Recovered/Resolved]
  - Gait disturbance [Recovered/Resolved]
